FAERS Safety Report 4626538-X (Version None)
Quarter: 2005Q1

REPORT INFORMATION
  Report Type: 
  Country: None (occurrence: None)
  Receive Date: 20050330
  Receipt Date: 20050315
  Transmission Date: 20050727
  Serious: Yes (Hospitalization)
  Sender: FDA-Public Use
  Company Number: USA031255007

PATIENT
  Age: 68 Year
  Sex: Female
  Weight: 51 kg

DRUGS (13)
  1. FORTEO [Suspect]
     Indication: OSTEOPOROSIS
     Dosage: UNK
     Route: 065
     Dates: start: 20031217
  2. EVISTA [Suspect]
     Dosage: UNK
     Route: 065
     Dates: start: 20050201
  3. METHOTREXATE [Concomitant]
  4. VICODIN [Concomitant]
  5. STEROIDS [Concomitant]
  6. CALCIUM GLUCONATE [Concomitant]
  7. CALCIUM CITRATE [Concomitant]
  8. PHENERGAN [Concomitant]
  9. PRAVACHOL [Concomitant]
  10. LOTENSIN [Concomitant]
  11. HYDROCHLOROTHIAZIDE [Concomitant]
  12. THREE BLOOD PRESSURE MEDICINES [Concomitant]
  13. NEXIUM [Concomitant]

REACTIONS (9)
  - BALANCE DISORDER [None]
  - DIZZINESS [None]
  - GASTROINTESTINAL ULCER [None]
  - INITIAL INSOMNIA [None]
  - MIGRAINE [None]
  - NAUSEA [None]
  - PAIN IN EXTREMITY [None]
  - PHARMACEUTICAL PRODUCT COMPLAINT [None]
  - TREATMENT NONCOMPLIANCE [None]
